FAERS Safety Report 8131380-1 (Version None)
Quarter: 2012Q1

REPORT INFORMATION
  Report Type: 
  Country: None (occurrence: None)
  Receive Date: 20120103
  Receipt Date: 20110830
  Transmission Date: 20120608
  Serious: No
  Sender: FDA-Public Use
  Company Number: AE-2011-001222

PATIENT
  Age: 59 Year
  Sex: Male
  Weight: 86.1834 kg

DRUGS (7)
  1. NORVASC [Concomitant]
  2. RIBAVIRIN [Concomitant]
  3. BENICAR [Concomitant]
  4. LUNESTA [Concomitant]
  5. INCIVEK [Suspect]
     Dosage: 2250 MG (750 MG,1 IN 8 HR),ORAL
     Route: 048
     Dates: start: 20110816
  6. PEGASYS [Concomitant]
  7. CITALOPRAM HYDROBROMIDE [Concomitant]

REACTIONS (3)
  - NAUSEA [None]
  - FEAR [None]
  - DEPRESSION [None]
